FAERS Safety Report 15171489 (Version 2)
Quarter: 2018Q3

REPORT INFORMATION
  Report Type: Spontaneous
  Country: FR (occurrence: FR)
  Receive Date: 20180720
  Receipt Date: 20180726
  Transmission Date: 20181010
  Serious: Yes (Other)
  Sender: FDA-Public Use
  Company Number: FR-PFIZER INC-2018290056

PATIENT
  Age: 52 Year
  Sex: Male

DRUGS (1)
  1. METHOTREXATE SODIUM. [Suspect]
     Active Substance: METHOTREXATE SODIUM
     Dosage: 10 MG, DAILY (OVER THREE CONSECUTIVE DAYS)

REACTIONS (6)
  - Overdose [Unknown]
  - Acute kidney injury [Unknown]
  - Pancytopenia [Unknown]
  - Dermatitis exfoliative generalised [Unknown]
  - Hepatic failure [Unknown]
  - Skin toxicity [Unknown]
